FAERS Safety Report 13180826 (Version 1)
Quarter: 2017Q1

REPORT INFORMATION
  Report Type: Spontaneous
  Country: US (occurrence: US)
  Receive Date: 20170202
  Receipt Date: 20170202
  Transmission Date: 20170428
  Serious: No
  Sender: FDA-Public Use
  Company Number: US-SMITH AND NEPHEW, INC-2016SMT00305

PATIENT
  Sex: Female

DRUGS (15)
  1. LISINOPRIL. [Concomitant]
     Active Substance: LISINOPRIL
     Dosage: 10 MG, 1X/DAY
  2. METANX [Concomitant]
     Active Substance: LEVOMEFOLATE CALCIUM\METHYLCOBALAMIN\PYRIDOXAL PHOSPHATE ANHYDROUS
     Dosage: 2 TABLETS, 2X/DAY
  3. PLEXUS PRO BIO [Concomitant]
     Dosage: 5 UNK, 1X/DAY
  4. PLEXUS BLOC [Concomitant]
  5. PLEXUS CREAM PAIN [Concomitant]
  6. LORATADINE. [Concomitant]
     Active Substance: LORATADINE
     Dosage: 10 MG, AS NEEDED
  7. REGRANEX [Suspect]
     Active Substance: BECAPLERMIN
     Dosage: UNK UNK, 1X/DAY
     Route: 061
     Dates: start: 201603
  8. METFORMIN HYDORCHLORIDE ER [Concomitant]
     Dosage: 500 MG, 2X/DAY
  9. PLEXUS SLIM [Concomitant]
     Dosage: UNK, 1X/DAY
  10. REGRANEX [Suspect]
     Active Substance: BECAPLERMIN
     Indication: DIABETIC FOOT
     Dosage: UNK UNK, 1X/DAY
     Route: 061
     Dates: start: 2016, end: 2016
  11. MELOXICAM. [Concomitant]
     Active Substance: MELOXICAM
     Dosage: 15 MG, 1X/DAY
  12. MEGA X [Concomitant]
     Dosage: UNK, 2X/DAY
  13. GLIPIZIDE. [Concomitant]
     Active Substance: GLIPIZIDE
     Dosage: 10 UNK, 2X/DAY
  14. TOUJEO [Concomitant]
     Active Substance: INSULIN GLARGINE
     Dosage: 50 MG, 1X/DAY
  15. BIO CLEANSE [Concomitant]
     Dosage: UNK, 2X/DAY

REACTIONS (1)
  - Wound complication [Unknown]

NARRATIVE: CASE EVENT DATE: 2016
